FAERS Safety Report 8188211-3 (Version None)
Quarter: 2012Q1

REPORT INFORMATION
  Report Type: 
  Country: None (occurrence: None)
  Receive Date: 20120306
  Receipt Date: 20120229
  Transmission Date: 20120608
  Serious: Yes (Hospitalization)
  Sender: FDA-Public Use
  Company Number: FR-ABBOTT-12P-056-0910140-00

PATIENT
  Age: 76 Year
  Sex: Male

DRUGS (7)
  1. ASPIRIN [Concomitant]
     Indication: PRODUCT USED FOR UNKNOWN INDICATION
     Dates: start: 20110928
  2. MEMANTINE HYDROCHLORIDE [Concomitant]
     Indication: PRODUCT USED FOR UNKNOWN INDICATION
     Dates: start: 20111011, end: 20111021
  3. VALPROIC ACID [Suspect]
     Dosage: DAILY, PROLONGED-RELEASE GRANULES
     Route: 048
     Dates: start: 20111008, end: 20111019
  4. VALPROIC ACID [Suspect]
     Dosage: DAILY, PROLONGED-RELEASE GRANULES
     Route: 048
     Dates: start: 20111001
  5. IMOVANE [Concomitant]
     Indication: PRODUCT USED FOR UNKNOWN INDICATION
     Dates: start: 20110928, end: 20111107
  6. OXAZEPAM [Concomitant]
     Indication: PRODUCT USED FOR UNKNOWN INDICATION
     Dates: start: 20110928, end: 20111025
  7. VALPROIC ACID [Suspect]
     Indication: PRODUCT USED FOR UNKNOWN INDICATION
     Dosage: DAILY, PROLONGED-RELEASE GRANULES
     Route: 048
     Dates: start: 20110928

REACTIONS (2)
  - HEPATIC ENCEPHALOPATHY [None]
  - HYPERAMMONAEMIA [None]
